FAERS Safety Report 7802737-0 (Version None)
Quarter: 2011Q4

REPORT INFORMATION
  Report Type: 
  Country: None (occurrence: None)
  Receive Date: 20111007
  Receipt Date: 20111003
  Transmission Date: 20120403
  Serious: Yes (Life-Threatening, Hospitalization)
  Sender: FDA-Public Use
  Company Number: PHHY2011TR87902

PATIENT
  Age: 24 Year
  Sex: Female

DRUGS (4)
  1. OXAPROZIN [Suspect]
     Dosage: 30 DF, UNK
  2. OXAPROZIN [Suspect]
     Dosage: 600 MG, UNK
  3. CARBAMAZEPINE [Suspect]
     Indication: EPILEPSY
     Dosage: 200 MG, UNK
  4. CARBAMAZEPINE [Suspect]
     Dosage: 280 DF, UNK

REACTIONS (10)
  - LARGE INTESTINAL OBSTRUCTION [None]
  - TOXICITY TO VARIOUS AGENTS [None]
  - NAUSEA [None]
  - VOMITING [None]
  - ABDOMINAL DISTENSION [None]
  - OVERDOSE [None]
  - ANTICONVULSANT DRUG LEVEL INCREASED [None]
  - SINUS TACHYCARDIA [None]
  - DIZZINESS [None]
  - SOMNOLENCE [None]
